FAERS Safety Report 5408711-6 (Version None)
Quarter: 2007Q3

REPORT INFORMATION
  Report Type: 
  Country: None (occurrence: None)
  Receive Date: 20070808
  Receipt Date: 20070803
  Transmission Date: 20080115
  Serious: Yes (Hospitalization, Other)
  Sender: FDA-Public Use
  Company Number: A0668154A

PATIENT
  Age: 1 Week

DRUGS (1)
  1. ALTABAX [Suspect]
     Indication: STAPHYLOCOCCAL INFECTION
     Dosage: 1APP TWICE PER DAY
     Route: 061
     Dates: start: 20070701, end: 20070802

REACTIONS (2)
  - DRUG INEFFECTIVE [None]
  - RASH PUSTULAR [None]
